FAERS Safety Report 13862203 (Version 1)
Quarter: 2017Q3

REPORT INFORMATION
  Report Type: Spontaneous
  Country: US (occurrence: US)
  Receive Date: 20170812
  Receipt Date: 20170812
  Transmission Date: 20171127
  Serious: Yes (Other)
  Sender: FDA-Public Use
  Company Number: US-MYLANLABS-2017M1049506

PATIENT

DRUGS (2)
  1. IFOSFAMIDE. [Suspect]
     Active Substance: IFOSFAMIDE
     Indication: MYXOID LIPOSARCOMA
     Route: 065
  2. DOXORUBICIN [Suspect]
     Active Substance: DOXORUBICIN
     Indication: MYXOID LIPOSARCOMA
     Route: 065

REACTIONS (1)
  - Telangiectasia [Recovered/Resolved]
